FAERS Safety Report 13205191 (Version 2)
Quarter: 2017Q1

REPORT INFORMATION
  Report Type: Spontaneous
  Country: MT (occurrence: MT)
  Receive Date: 20170209
  Receipt Date: 20170302
  Transmission Date: 20170428
  Serious: Yes (Other)
  Sender: FDA-Public Use
  Company Number: MT-CELLTRION INC.-2017MT001387

PATIENT

DRUGS (4)
  1. MESALAZINE [Concomitant]
     Active Substance: MESALAMINE
     Dosage: UNK UNK, 1X/DAY
  2. INFLECTRA [Suspect]
     Active Substance: INFLIXIMAB-DYYB
     Indication: COLITIS ULCERATIVE
     Dosage: 5 MG/KG, UNK
     Route: 042
     Dates: start: 201608
  3. AZATHIOPRIN [Concomitant]
     Active Substance: AZATHIOPRINE
     Dosage: FULL DOSE
  4. MESALAZINE [Concomitant]
     Active Substance: MESALAMINE
     Dosage: FULL DOSE

REACTIONS (3)
  - Disease recurrence [Not Recovered/Not Resolved]
  - Colitis ulcerative [Not Recovered/Not Resolved]
  - Clostridial infection [Recovered/Resolved]

NARRATIVE: CASE EVENT DATE: 201702
